FAERS Safety Report 17188197 (Version 1)
Quarter: 2019Q4

REPORT INFORMATION
  Report Type: Spontaneous
  Country: US (occurrence: US)
  Receive Date: 20191221
  Receipt Date: 20191221
  Transmission Date: 20200122
  Serious: No
  Sender: FDA-Public Use
  Company Number: US-SPROUT PHARMACEUTICALS, INC.-2019SP000127

PATIENT
  Age: 36 Year
  Sex: Female
  Weight: 54.03 kg

DRUGS (5)
  1. ADDYI [Suspect]
     Active Substance: FLIBANSERIN
     Route: 048
     Dates: start: 20191215, end: 20191216
  2. IRON SUPPLEMENT [Concomitant]
     Active Substance: IRON
     Indication: PRODUCT USED FOR UNKNOWN INDICATION
     Route: 048
  3. MULTIVITAMIN [Concomitant]
     Active Substance: VITAMINS
     Indication: PRODUCT USED FOR UNKNOWN INDICATION
     Route: 048
  4. SYNTHROID [Concomitant]
     Active Substance: LEVOTHYROXINE SODIUM
     Indication: HYPOTHYROIDISM
     Route: 048
  5. ADDYI [Suspect]
     Active Substance: FLIBANSERIN
     Indication: LIBIDO DECREASED
     Route: 048
     Dates: start: 201912, end: 20191213

REACTIONS (7)
  - Asthenia [Recovered/Resolved]
  - Blood pressure decreased [Recovered/Resolved]
  - Limb discomfort [Recovered/Resolved]
  - Chest discomfort [Recovered/Resolved]
  - Myalgia [Recovered/Resolved]
  - Breast pain [Recovered/Resolved]
  - Nausea [Recovered/Resolved]

NARRATIVE: CASE EVENT DATE: 201912
